FAERS Safety Report 7324062-7 (Version None)
Quarter: 2011Q1

REPORT INFORMATION
  Report Type: 
  Country: None (occurrence: None)
  Receive Date: 20110301
  Receipt Date: 20110224
  Transmission Date: 20110831
  Serious: Yes (Other)
  Sender: FDA-Public Use
  Company Number: CA-PFIZER INC-2011040700

PATIENT
  Age: 63 Year
  Sex: Male

DRUGS (13)
  1. CLONAZEPAM [Concomitant]
     Dosage: 0.5 MG, 2X/DAY
  2. BUSPIRONE [Concomitant]
     Dosage: 10 MG, UNK
  3. ASA [Concomitant]
     Dosage: 80 MG, UNK
  4. ATORVASTATIN [Concomitant]
     Dosage: 40 MG, UNK
  5. LYRICA [Suspect]
     Dosage: 50 MG, UNK
     Dates: start: 20110221
  6. XATRAL [Concomitant]
     Dosage: 10 MG, UNK
  7. DILTIAZEM [Concomitant]
     Dosage: 300 MG, UNK
  8. ATIVAN [Concomitant]
     Dosage: 1 MG, 3X/DAY
  9. NOVORAPID [Concomitant]
     Dosage: 8-12 IU, UNK
  10. RAMIPRIL [Concomitant]
     Dosage: 10 MG, UNK
  11. HYDROMORPHONE HCL [Concomitant]
     Dosage: 6 MG, 2X/DAY
  12. NOVOLIN N [Concomitant]
     Dosage: 20-24 IU, UNK
  13. SALBUTAMOL [Concomitant]
     Dosage: 2 INHALATIONS, AS NEEDED
     Route: 055

REACTIONS (1)
  - HERPES ZOSTER [None]
